FAERS Safety Report 14936574 (Version 1)
Quarter: 2018Q2

REPORT INFORMATION
  Report Type: Spontaneous
  Country: US (occurrence: US)
  Receive Date: 20180525
  Receipt Date: 20180525
  Transmission Date: 20180711
  Serious: No
  Sender: FDA-Public Use
  Company Number: US-TEVA-807735ACC

PATIENT
  Age: 97 Year
  Sex: Female

DRUGS (1)
  1. CLONIPAT-A (CLONIDINE) [Suspect]
     Active Substance: CLONIDINE
     Indication: HYPERTENSION

REACTIONS (3)
  - Vision blurred [Not Recovered/Not Resolved]
  - Insomnia [Not Recovered/Not Resolved]
  - Nausea [Not Recovered/Not Resolved]
